FAERS Safety Report 11715046 (Version 1)
Quarter: 2015Q4

REPORT INFORMATION
  Report Type: Spontaneous
  Country: US (occurrence: US)
  Receive Date: 20151109
  Receipt Date: 20151109
  Transmission Date: 20160304
  Serious: No
  Sender: FDA-Public Use
  Company Number: US-BAUSCH-BL-2015-017269

PATIENT
  Age: 67 Year
  Sex: Male
  Weight: 68.1 kg

DRUGS (2)
  1. ZIRGAN [Suspect]
     Active Substance: GANCICLOVIR
     Indication: HERPES SIMPLEX
     Route: 061
     Dates: start: 201506, end: 20150710
  2. PROTONIX [Concomitant]
     Active Substance: PANTOPRAZOLE SODIUM
     Indication: GASTROINTESTINAL DISORDER
     Route: 048

REACTIONS (1)
  - Eye irritation [Recovering/Resolving]

NARRATIVE: CASE EVENT DATE: 20150709
